FAERS Safety Report 8365974-5 (Version None)
Quarter: 2012Q2

REPORT INFORMATION
  Report Type: 
  Country: None (occurrence: None)
  Receive Date: 20120517
  Receipt Date: 20120511
  Transmission Date: 20120825
  Serious: No
  Sender: FDA-Public Use
  Company Number: US-PFIZER INC-2012115805

PATIENT
  Sex: Male
  Weight: 72.562 kg

DRUGS (4)
  1. VIAGRA [Suspect]
     Dosage: 100 MG, DAILY
  2. LISINOPRIL [Concomitant]
     Indication: CARDIAC DISORDER
     Dosage: 10 MG, DAILY
  3. TOPROL-XL [Concomitant]
     Indication: CARDIAC DISORDER
     Dosage: 25 MG, DAILY
  4. VIAGRA [Suspect]
     Dosage: UNK
     Dates: start: 20110101

REACTIONS (1)
  - DRUG INEFFECTIVE [None]
